FAERS Safety Report 15657009 (Version 1)
Quarter: 2018Q4

REPORT INFORMATION
  Report Type: Report from Study
  Country: BR (occurrence: BR)
  Receive Date: 20181126
  Receipt Date: 20181126
  Transmission Date: 20190205
  Serious: Yes (Other)
  Sender: FDA-Public Use
  Company Number: BR-SAKK-2018SA150664AA

PATIENT
  Sex: Female
  Weight: 53 kg

DRUGS (1)
  1. INSULIN GLARGINE [Suspect]
     Active Substance: INSULIN GLARGINE
     Indication: TYPE 2 DIABETES MELLITUS
     Dosage: 20 IU, QD
     Route: 058
     Dates: start: 20180528

REACTIONS (2)
  - Hypoglycaemia [Recovering/Resolving]
  - Speech disorder [Recovering/Resolving]
